FAERS Safety Report 23245337 (Version 1)
Quarter: 2023Q4

REPORT INFORMATION
  Report Type: Other
  Country: EG (occurrence: None)
  Receive Date: 20231130
  Receipt Date: 20231130
  Transmission Date: 20240110
  Serious: Yes (Other)
  Sender: FDA-Public Use
  Company Number: EG-ROCHE-3464170

PATIENT
  Age: 44 Year
  Sex: Male
  Weight: 98 kg

DRUGS (1)
  1. TECENTRIQ [Suspect]
     Active Substance: ATEZOLIZUMAB
     Indication: Product used for unknown indication
     Route: 041
     Dates: start: 20230330

REACTIONS (1)
  - Hepatic neoplasm [Not Recovered/Not Resolved]
